FAERS Safety Report 20781337 (Version 1)
Quarter: 2022Q2

REPORT INFORMATION
  Report Type: Other
  Country: US (occurrence: None)
  Receive Date: 20220504
  Receipt Date: 20220504
  Transmission Date: 20220721
  Serious: Yes (Hospitalization)
  Sender: FDA-Public Use
  Company Number: US-ROCHE-3086665

PATIENT
  Sex: Female

DRUGS (66)
  1. XOLAIR [Suspect]
     Active Substance: OMALIZUMAB
     Indication: Aortic arteriosclerosis
     Dosage: INJECT 2ML (300MG) SUBCUTANEOUSLY ONCE EVERY 2 WEEK(S)
     Route: 058
  2. XOLAIR [Suspect]
     Active Substance: OMALIZUMAB
  3. XOLAIR [Suspect]
     Active Substance: OMALIZUMAB
  4. XOLAIR [Suspect]
     Active Substance: OMALIZUMAB
     Indication: Bronchitis
  5. XOLAIR [Suspect]
     Active Substance: OMALIZUMAB
  6. XOLAIR [Suspect]
     Active Substance: OMALIZUMAB
  7. XOLAIR [Suspect]
     Active Substance: OMALIZUMAB
     Indication: Rhinitis allergic
  8. XOLAIR [Suspect]
     Active Substance: OMALIZUMAB
  9. XOLAIR [Suspect]
     Active Substance: OMALIZUMAB
  10. XOLAIR [Suspect]
     Active Substance: OMALIZUMAB
     Indication: Chronic obstructive pulmonary disease
  11. XOLAIR [Suspect]
     Active Substance: OMALIZUMAB
  12. XOLAIR [Suspect]
     Active Substance: OMALIZUMAB
  13. XOLAIR [Suspect]
     Active Substance: OMALIZUMAB
     Indication: Cough variant asthma
  14. XOLAIR [Suspect]
     Active Substance: OMALIZUMAB
  15. XOLAIR [Suspect]
     Active Substance: OMALIZUMAB
  16. XOLAIR [Suspect]
     Active Substance: OMALIZUMAB
     Indication: Depression
  17. XOLAIR [Suspect]
     Active Substance: OMALIZUMAB
  18. XOLAIR [Suspect]
     Active Substance: OMALIZUMAB
  19. XOLAIR [Suspect]
     Active Substance: OMALIZUMAB
     Indication: Gastrooesophageal reflux disease
  20. XOLAIR [Suspect]
     Active Substance: OMALIZUMAB
  21. XOLAIR [Suspect]
     Active Substance: OMALIZUMAB
  22. XOLAIR [Suspect]
     Active Substance: OMALIZUMAB
     Indication: Hypertension
  23. XOLAIR [Suspect]
     Active Substance: OMALIZUMAB
  24. XOLAIR [Suspect]
     Active Substance: OMALIZUMAB
  25. XOLAIR [Suspect]
     Active Substance: OMALIZUMAB
     Indication: Cataract
  26. XOLAIR [Suspect]
     Active Substance: OMALIZUMAB
  27. XOLAIR [Suspect]
     Active Substance: OMALIZUMAB
  28. XOLAIR [Suspect]
     Active Substance: OMALIZUMAB
     Indication: Interstitial lung disease
  29. XOLAIR [Suspect]
     Active Substance: OMALIZUMAB
  30. XOLAIR [Suspect]
     Active Substance: OMALIZUMAB
  31. XOLAIR [Suspect]
     Active Substance: OMALIZUMAB
     Indication: Leukocytosis
  32. XOLAIR [Suspect]
     Active Substance: OMALIZUMAB
  33. XOLAIR [Suspect]
     Active Substance: OMALIZUMAB
  34. XOLAIR [Suspect]
     Active Substance: OMALIZUMAB
     Indication: Major depression
  35. XOLAIR [Suspect]
     Active Substance: OMALIZUMAB
  36. XOLAIR [Suspect]
     Active Substance: OMALIZUMAB
  37. XOLAIR [Suspect]
     Active Substance: OMALIZUMAB
     Indication: Asthma
  38. XOLAIR [Suspect]
     Active Substance: OMALIZUMAB
  39. XOLAIR [Suspect]
     Active Substance: OMALIZUMAB
  40. XOLAIR [Suspect]
     Active Substance: OMALIZUMAB
     Indication: Obesity
  41. XOLAIR [Suspect]
     Active Substance: OMALIZUMAB
  42. XOLAIR [Suspect]
     Active Substance: OMALIZUMAB
  43. XOLAIR [Suspect]
     Active Substance: OMALIZUMAB
     Indication: Obesity
  44. XOLAIR [Suspect]
     Active Substance: OMALIZUMAB
  45. XOLAIR [Suspect]
     Active Substance: OMALIZUMAB
  46. XOLAIR [Suspect]
     Active Substance: OMALIZUMAB
     Indication: Pulmonary mass
  47. XOLAIR [Suspect]
     Active Substance: OMALIZUMAB
  48. XOLAIR [Suspect]
     Active Substance: OMALIZUMAB
  49. XOLAIR [Suspect]
     Active Substance: OMALIZUMAB
     Indication: Obstructive sleep apnoea syndrome
  50. XOLAIR [Suspect]
     Active Substance: OMALIZUMAB
  51. XOLAIR [Suspect]
     Active Substance: OMALIZUMAB
  52. XOLAIR [Suspect]
     Active Substance: OMALIZUMAB
     Indication: Osteopenia
  53. XOLAIR [Suspect]
     Active Substance: OMALIZUMAB
  54. XOLAIR [Suspect]
     Active Substance: OMALIZUMAB
  55. XOLAIR [Suspect]
     Active Substance: OMALIZUMAB
     Indication: Epiretinal membrane
  56. XOLAIR [Suspect]
     Active Substance: OMALIZUMAB
  57. XOLAIR [Suspect]
     Active Substance: OMALIZUMAB
  58. XOLAIR [Suspect]
     Active Substance: OMALIZUMAB
     Indication: Sjogren^s syndrome
  59. XOLAIR [Suspect]
     Active Substance: OMALIZUMAB
  60. XOLAIR [Suspect]
     Active Substance: OMALIZUMAB
  61. XOLAIR [Suspect]
     Active Substance: OMALIZUMAB
     Indication: Systemic scleroderma
  62. XOLAIR [Suspect]
     Active Substance: OMALIZUMAB
  63. XOLAIR [Suspect]
     Active Substance: OMALIZUMAB
  64. XOLAIR [Suspect]
     Active Substance: OMALIZUMAB
     Indication: Asthma
  65. XOLAIR [Suspect]
     Active Substance: OMALIZUMAB
  66. XOLAIR [Suspect]
     Active Substance: OMALIZUMAB

REACTIONS (1)
  - Condition aggravated [Unknown]
